FAERS Safety Report 5965350-6 (Version None)
Quarter: 2008Q4

REPORT INFORMATION
  Report Type: 
  Country: None (occurrence: None)
  Receive Date: 20081125
  Receipt Date: 20081118
  Transmission Date: 20090506
  Serious: Yes (Hospitalization)
  Sender: FDA-Public Use
  Company Number: FR-ASTRAZENECA-2008CG01689

PATIENT
  Age: 16318 Day
  Sex: Female

DRUGS (2)
  1. ZOMIGORO [Suspect]
     Indication: MIGRAINE
     Dosage: TWO FASTMELT TABLETS PER WEEK
     Route: 048
     Dates: start: 20080930, end: 20081001
  2. IXPRIM [Concomitant]
     Indication: MIGRAINE
     Dates: start: 20060101

REACTIONS (1)
  - ISCHAEMIC STROKE [None]
